FAERS Safety Report 8503572-0 (Version None)
Quarter: 2012Q3

REPORT INFORMATION
  Report Type: 
  Country: None (occurrence: None)
  Receive Date: 20120711
  Receipt Date: 20120702
  Transmission Date: 20120928
  Serious: Yes (Other)
  Sender: FDA-Public Use
  Company Number: JP-VERTEX PHARMACEUTICALS INC.-AE-2012-009871

PATIENT
  Age: 58 Year
  Sex: Female

DRUGS (11)
  1. REBETOL [Concomitant]
     Route: 048
     Dates: start: 20120528, end: 20120604
  2. GOODMIN [Concomitant]
     Route: 048
     Dates: start: 20120612
  3. REBETOL [Concomitant]
     Indication: HEPATITIS C
     Route: 048
     Dates: start: 20120514, end: 20120527
  4. PEGINTERFERON ALFA-2B [Concomitant]
     Indication: HEPATITIS C
     Route: 058
     Dates: start: 20120514
  5. OLMESARTAN MEDOXOMIL [Concomitant]
     Route: 048
     Dates: end: 20120527
  6. DIAZEPAM [Concomitant]
     Route: 048
     Dates: end: 20120528
  7. MUCOSTA [Concomitant]
     Route: 048
     Dates: start: 20120514, end: 20120604
  8. LOXOPROFEN [Concomitant]
     Route: 048
     Dates: start: 20120514, end: 20120604
  9. REBETOL [Concomitant]
     Route: 048
     Dates: start: 20120605
  10. URDENACIN [Concomitant]
     Route: 048
     Dates: end: 20120514
  11. TELAVIC (TELAPREVIR) [Suspect]
     Indication: HEPATITIS C
     Route: 048
     Dates: start: 20120514

REACTIONS (10)
  - MALAISE [None]
  - ERYTHEMA [None]
  - BLOOD URIC ACID INCREASED [None]
  - DECREASED APPETITE [None]
  - BOWEL MOVEMENT IRREGULARITY [None]
  - BLOOD PRESSURE DECREASED [None]
  - ABDOMINAL PAIN UPPER [None]
  - PLATELET COUNT DECREASED [None]
  - RETINOPATHY [None]
  - WHITE BLOOD CELL COUNT DECREASED [None]
